FAERS Safety Report 10057823 (Version 1)
Quarter: 2014Q2

REPORT INFORMATION
  Report Type: Spontaneous
  Country: DE (occurrence: DE)
  Receive Date: 20140404
  Receipt Date: 20140404
  Transmission Date: 20141212
  Serious: Yes (Death, Other)
  Sender: FDA-Public Use
  Company Number: PHHY2014DE036736

PATIENT
  Age: 54 Year
  Sex: Female

DRUGS (13)
  1. CISPLATIN [Suspect]
     Indication: THYMIC CANCER METASTATIC
     Dates: start: 200705, end: 200706
  2. CISPLATIN [Suspect]
     Dates: end: 200903
  3. ETOPOSIDE [Suspect]
     Indication: THYMIC CANCER METASTATIC
     Dates: start: 200705, end: 200706
  4. IFOSFAMIDE [Suspect]
     Indication: THYMIC CANCER METASTATIC
     Dates: start: 200705, end: 200706
  5. DOXORUBICIN [Suspect]
     Indication: THYMIC CANCER METASTATIC
     Dates: start: 200705, end: 200706
  6. DOXORUBICIN [Suspect]
     Dates: end: 200903
  7. VINCRISTINE [Suspect]
     Indication: THYMIC CANCER METASTATIC
     Dates: start: 200705, end: 200706
  8. VINCRISTINE [Suspect]
     Dates: end: 200903
  9. PACLITAXEL [Suspect]
     Indication: THYMIC CANCER METASTATIC
     Dates: start: 200803
  10. GEMCITABINE [Suspect]
     Indication: THYMIC CANCER METASTATIC
     Dates: start: 200803
  11. OXALIPLATIN [Suspect]
     Indication: THYMIC CANCER METASTATIC
     Dates: start: 200803
  12. CYCLOPHOSPHAMIDE [Suspect]
     Indication: THYMIC CANCER METASTATIC
     Dates: start: 200705, end: 200706
  13. CYCLOPHOSPHAMIDE [Suspect]
     Dates: end: 200903

REACTIONS (11)
  - Septic shock [Fatal]
  - Pneumonia [Unknown]
  - Disseminated intravascular coagulation [Unknown]
  - Renal impairment [Unknown]
  - Sepsis [Unknown]
  - Neutropenia [Unknown]
  - Thymic cancer metastatic [Unknown]
  - Malignant neoplasm progression [Unknown]
  - Metastases to liver [Unknown]
  - Liver disorder [Unknown]
  - Drug effect incomplete [Unknown]
